FAERS Safety Report 9775523 (Version 2)
Quarter: 2014Q1

REPORT INFORMATION
  Report Type: Spontaneous
  Country: US (occurrence: US)
  Receive Date: 20131220
  Receipt Date: 20140318
  Transmission Date: 20141002
  Serious: No
  Sender: FDA-Public Use
  Company Number: US-GALDERMA-US13003586

PATIENT
  Age: 61 Year
  Sex: Female

DRUGS (16)
  1. MIRVASO (BRIMONIDINE) TOPICAL GEL, 0.33% [Suspect]
     Indication: ROSACEA
     Dosage: 0.33%
     Route: 061
     Dates: start: 20131023, end: 20131109
  2. METOPROLOL [Concomitant]
     Indication: HYPERTENSION
     Dosage: 100 MG
     Route: 048
     Dates: start: 2013
  3. FLECAINIDE [Concomitant]
     Indication: TACHYCARDIA
     Dosage: 100 MG
     Route: 048
     Dates: start: 2013
  4. SIMVASTATIN [Concomitant]
     Indication: HYPERCHOLESTEROLAEMIA
     Dosage: 40 MG
     Route: 048
     Dates: start: 2013
  5. OMEPRAZOLE [Concomitant]
     Indication: GASTROOESOPHAGEAL REFLUX DISEASE
     Dosage: 20 MG
     Route: 048
     Dates: start: 2011
  6. TRAVATAN Z (TRAVOPROST OPHTHALMIC SOLUTION) 0.004% [Concomitant]
     Indication: GLAUCOMA
     Dosage: 0.004%
     Route: 031
     Dates: start: 2012
  7. CLEAN AND CLEAR CLEANSER [Concomitant]
     Indication: THERAPEUTIC SKIN CARE TOPICAL
     Route: 061
  8. REVLON COLORSTAY AQUA MINERAL MAKEUP [Concomitant]
     Indication: THERAPEUTIC SKIN CARE TOPICAL
     Route: 061
  9. AVEENO MOISTURIZER [Concomitant]
     Indication: DRY SKIN PROPHYLAXIS
     Route: 061
  10. VITAMIN E CREAM [Concomitant]
     Route: 061
  11. B COMPLEX VIT [Concomitant]
     Indication: SUPPLEMENTATION THERAPY
     Route: 048
     Dates: start: 2012
  12. D3 [Concomitant]
     Indication: OSTEOPENIA
     Route: 048
     Dates: start: 2011
  13. CALCIUM [Concomitant]
     Indication: OSTEOPENIA
     Route: 048
     Dates: start: 2008
  14. MAGNESIUM [Concomitant]
     Indication: CARDIAC DISORDER
     Route: 048
     Dates: start: 2007
  15. ASPIRIN [Concomitant]
     Indication: BLOOD CHOLESTEROL
     Route: 048
     Dates: start: 2013
  16. IBUPROFEN [Concomitant]
     Indication: PAIN
     Route: 048
     Dates: start: 2012

REACTIONS (3)
  - Condition aggravated [Recovered/Resolved]
  - Feeling hot [Recovered/Resolved]
  - Erythema [Recovered/Resolved]
